FAERS Safety Report 16583819 (Version 1)
Quarter: 2019Q3

REPORT INFORMATION
  Report Type: Spontaneous
  Country: DE (occurrence: DE)
  Receive Date: 20190717
  Receipt Date: 20190717
  Transmission Date: 20191004
  Serious: Yes (Hospitalization)
  Sender: FDA-Public Use
  Company Number: DE-TEVA-2019-DE-1078074

PATIENT
  Age: 75 Year
  Sex: Female
  Weight: 75 kg

DRUGS (12)
  1. DIAZEPAM-RATIOPHARM 10MG/ML [Suspect]
     Active Substance: DIAZEPAM
     Dosage: 5 GTT, NEED, DROPS
     Route: 048
  2. ASS 100 [Concomitant]
     Active Substance: ASPIRIN
     Dosage: 100 MG, 1-0-0-0, TABLETS
     Route: 048
  3. XIMOVAN [Concomitant]
     Active Substance: ZOPICLONE
     Dosage: 0.5-1-0-0, TABLETS
     Route: 048
  4. MAGNESIUM VERLA [Concomitant]
     Active Substance: MAGNESIUM
     Dosage: 0-0-1-0
     Route: 048
  5. TROMCARDIN COMPLEX [Concomitant]
     Dosage: 1-1-0-0, TABLETS
     Route: 048
  6. TRIMIPRAMIN [Suspect]
     Active Substance: TRIMIPRAMINE
     Dosage: 25 MG, PAUSE, SOLUTION
     Route: 048
  7. NITROLINGUAL [Concomitant]
     Active Substance: NITROGLYCERIN
     Dosage: NEED, SPRAY
     Route: 055
  8. L-THYROXIN 125?G [Concomitant]
     Dosage: 125 ?G, 1-0-0-0, TABLETS
     Route: 048
  9. CIPRALEX [Suspect]
     Active Substance: ESCITALOPRAM OXALATE
     Dosage: 10 MG, 1-0-0-0, TABLETTEN
     Route: 048
  10. LEXOTANIL 6MG [Concomitant]
     Dosage: 6 MG, 0.25-0-0.25-0, TABLETS
     Route: 048
  11. DIOVAN [Concomitant]
     Active Substance: VALSARTAN
  12. CONCOR 2,5 MG [Suspect]
     Active Substance: BISOPROLOL FUMARATE
     Dosage: 2.5 MG, 1-0-0-0, TABLETS
     Route: 048

REACTIONS (3)
  - Dizziness [Unknown]
  - Hypertension [Unknown]
  - Bradycardia [Unknown]
